FAERS Safety Report 11991043 (Version 2)
Quarter: 2016Q1

REPORT INFORMATION
  Report Type: Spontaneous
  Country: FR (occurrence: FR)
  Receive Date: 20160202
  Receipt Date: 20160212
  Transmission Date: 20160526
  Serious: Yes (Hospitalization)
  Sender: FDA-Public Use
  Company Number: FR-ROCHE-1704396

PATIENT
  Age: 78 Year
  Sex: Female
  Weight: 90 kg

DRUGS (2)
  1. LUCENTIS [Suspect]
     Active Substance: RANIBIZUMAB
     Dosage: RIGHT AND LEFT EYE
     Route: 050
     Dates: start: 20151102, end: 20151102
  2. LUCENTIS [Suspect]
     Active Substance: RANIBIZUMAB
     Indication: NEOVASCULAR AGE-RELATED MACULAR DEGENERATION
     Dosage: RIGHT AND LEFT EYE
     Route: 050
     Dates: start: 20140408, end: 20150408

REACTIONS (1)
  - Myocardial infarction [Recovering/Resolving]

NARRATIVE: CASE EVENT DATE: 20160120
